FAERS Safety Report 24440976 (Version 2)
Quarter: 2024Q4

REPORT INFORMATION
  Report Type: Report from Study
  Country: US (occurrence: US)
  Receive Date: 20241016
  Receipt Date: 20241017
  Transmission Date: 20250115
  Serious: No
  Sender: ROCHE
  Company Number: US-ROCHE-3466971

PATIENT
  Age: 25 Year
  Sex: Male

DRUGS (2)
  1. HEMLIBRA [Suspect]
     Active Substance: EMICIZUMAB-KXWH
     Indication: Factor VIII deficiency
     Dosage: INJECT 273MG (1.82 ML TOTAL - DRAW 0.7ML FROM 1-105MG VIAL AND 1.12ML FROM 3-60MG VIAL) SUBCUTANEOUS
     Route: 058
  2. HEMLIBRA [Suspect]
     Active Substance: EMICIZUMAB-KXWH
     Dosage: INJECT 273MG (1.82 ML TOTAL - DRAW 0.7ML FROM 1-105MG VIAL AND 1.12ML FROM 3-60MG VIAL)
     Route: 058

REACTIONS (2)
  - Incorrect dose administered [Unknown]
  - No adverse event [Unknown]
